FAERS Safety Report 8198602-2 (Version None)
Quarter: 2012Q1

REPORT INFORMATION
  Report Type: 
  Country: None (occurrence: None)
  Receive Date: 20120309
  Receipt Date: 20120302
  Transmission Date: 20120608
  Serious: Yes (Other)
  Sender: FDA-Public Use
  Company Number: US-US-EMD SERONO, INC.-7116790

PATIENT
  Sex: Female

DRUGS (1)
  1. REBIF [Suspect]
     Indication: MULTIPLE SCLEROSIS
     Route: 058
     Dates: start: 20110901

REACTIONS (4)
  - BIPOLAR DISORDER [None]
  - HOMICIDAL IDEATION [None]
  - GAIT DISTURBANCE [None]
  - NASOPHARYNGITIS [None]
